FAERS Safety Report 5712661-5 (Version None)
Quarter: 2008Q2

REPORT INFORMATION
  Report Type: 
  Country: None (occurrence: None)
  Receive Date: 20080422
  Receipt Date: 20080421
  Transmission Date: 20081010
  Serious: Yes (Other)
  Sender: FDA-Public Use
  Company Number: A0707454A

PATIENT
  Age: 65 Year
  Sex: Female

DRUGS (2)
  1. ALLI [Suspect]
     Indication: WEIGHT LOSS DIET
     Route: 048
     Dates: start: 20070707, end: 20080420
  2. DIURETIC [Concomitant]

REACTIONS (9)
  - ABDOMINAL PAIN UPPER [None]
  - ASTHENIA [None]
  - BLOOD AMYLASE INCREASED [None]
  - DIARRHOEA [None]
  - FLUID RETENTION [None]
  - GASTROINTESTINAL DISORDER [None]
  - NAUSEA [None]
  - NIGHT SWEATS [None]
  - WEIGHT INCREASED [None]
